FAERS Safety Report 16760948 (Version 2)
Quarter: 2019Q4

REPORT INFORMATION
  Report Type: Spontaneous
  Country: US (occurrence: US)
  Receive Date: 20190830
  Receipt Date: 20191001
  Transmission Date: 20200122
  Serious: Yes (Other)
  Sender: FDA-Public Use
  Company Number: US-COOPERSURGICAL, INC.-US-2019CPS002641

PATIENT
  Age: 41 Year
  Sex: Female
  Weight: 65.31 kg

DRUGS (1)
  1. PARAGARD T 380A [Suspect]
     Active Substance: COPPER
     Indication: CONTRACEPTION
     Dosage: UNK
     Route: 015
     Dates: start: 20090810, end: 20190822

REACTIONS (7)
  - Device breakage [Recovered/Resolved]
  - Complication of device removal [Recovered/Resolved]
  - Foreign body in urogenital tract [Recovered/Resolved]
  - Vaginal discharge [Recovered/Resolved]
  - Device use issue [Recovered/Resolved]
  - Vaginal infection [Recovered/Resolved]
  - Cervicitis [Recovered/Resolved]

NARRATIVE: CASE EVENT DATE: 201902
